FAERS Safety Report 7740225-0 (Version None)
Quarter: 2011Q3

REPORT INFORMATION
  Report Type: 
  Country: None (occurrence: None)
  Receive Date: 20110909
  Receipt Date: 20110909
  Transmission Date: 20111222
  Serious: Yes (Other)
  Sender: FDA-Public Use
  Company Number: None

PATIENT
  Age: 47 Year
  Sex: Male
  Weight: 130 kg

DRUGS (1)
  1. CUBICIN [Suspect]
     Dosage: 6000 MG
     Route: 042
     Dates: start: 20110812, end: 20110907

REACTIONS (1)
  - VISION BLURRED [None]
